FAERS Safety Report 16573510 (Version 1)
Quarter: 2019Q3

REPORT INFORMATION
  Report Type: Report from Study
  Country: US (occurrence: US)
  Receive Date: 20190715
  Receipt Date: 20190715
  Transmission Date: 20191004
  Serious: Yes (Other)
  Sender: FDA-Public Use
  Company Number: US-GILEAD-2019-0417893

PATIENT
  Sex: Male

DRUGS (14)
  1. AZITHROMYCIN ANHYDROUS. [Concomitant]
     Active Substance: AZITHROMYCIN ANHYDROUS
  2. CETIRIZINE HCL [Concomitant]
     Active Substance: CETIRIZINE HYDROCHLORIDE
  3. AZTREONAM LYSINE [Suspect]
     Active Substance: AZTREONAM LYSINE
     Indication: HAEMOPTYSIS
     Dosage: 75 UG, THREE TIMES A DAY EVERY OTHER MONTH
     Route: 055
  4. HYDROXYZINE HCL [Concomitant]
     Active Substance: HYDROXYZINE HYDROCHLORIDE
  5. VYVANSE [Concomitant]
     Active Substance: LISDEXAMFETAMINE DIMESYLATE
  6. TOBRAMYCIN. [Concomitant]
     Active Substance: TOBRAMYCIN
  7. GENTAMICIN SULFATE. [Concomitant]
     Active Substance: GENTAMICIN SULFATE
  8. MONTELUKAST SODIUM. [Concomitant]
     Active Substance: MONTELUKAST SODIUM
  9. PULMOZYME [Concomitant]
     Active Substance: DORNASE ALFA
  10. COLISTIMETHATE [COLISTIMETHATE SODIUM] [Concomitant]
  11. HYPERSAL [Concomitant]
     Active Substance: SODIUM CHLORIDE
  12. ADVAIR HFA [Concomitant]
     Active Substance: FLUTICASONE PROPIONATE\SALMETEROL XINAFOATE
  13. ESCITALOPRAM OXALATE. [Concomitant]
     Active Substance: ESCITALOPRAM OXALATE
  14. VITAMIN D [VITAMIN D NOS] [Concomitant]
     Active Substance: VITAMIN D NOS

REACTIONS (4)
  - Off label use [Not Recovered/Not Resolved]
  - Pneumonia [Unknown]
  - Drug hypersensitivity [Unknown]
  - Haemoptysis [Unknown]
